FAERS Safety Report 24046146 (Version 1)
Quarter: 2024Q3

REPORT INFORMATION
  Report Type: Report from Study
  Country: US (occurrence: US)
  Receive Date: 20240703
  Receipt Date: 20240703
  Transmission Date: 20241017
  Serious: Yes (Hospitalization, Other)
  Sender: TAKEDA
  Company Number: US-TAKEDA-2024TUS066723

PATIENT
  Age: 65 Year
  Sex: Female

DRUGS (8)
  1. TEDUGLUTIDE [Suspect]
     Active Substance: TEDUGLUTIDE
     Indication: Short-bowel syndrome
     Dosage: 3.27 MILLIGRAM, QD
     Route: 042
     Dates: start: 20150617
  2. TEDUGLUTIDE [Suspect]
     Active Substance: TEDUGLUTIDE
     Indication: Short-bowel syndrome
     Dosage: 3.27 MILLIGRAM, QD
     Route: 042
     Dates: start: 20150617
  3. TEDUGLUTIDE [Suspect]
     Active Substance: TEDUGLUTIDE
     Indication: Short-bowel syndrome
     Dosage: 3.27 MILLIGRAM, QD
     Route: 042
     Dates: start: 20150617
  4. TEDUGLUTIDE [Suspect]
     Active Substance: TEDUGLUTIDE
     Indication: Short-bowel syndrome
     Dosage: 3.27 MILLIGRAM, QD
     Route: 042
     Dates: start: 20150617
  5. OPIUM [Concomitant]
     Active Substance: MORPHINE\OPIUM
     Indication: Short-bowel syndrome
     Dosage: 10 MILLILITER, QID
     Route: 048
     Dates: start: 20240626
  6. LAMOTRIGINE [Concomitant]
     Active Substance: LAMOTRIGINE
     Indication: Seizure prophylaxis
     Dosage: 50 MILLIGRAM, BID
     Route: 048
     Dates: start: 20230217, end: 20230223
  7. LAMOTRIGINE [Concomitant]
     Active Substance: LAMOTRIGINE
     Dosage: 75 MILLIGRAM, BID
     Route: 048
     Dates: start: 20230224, end: 20230302
  8. LAMOTRIGINE [Concomitant]
     Active Substance: LAMOTRIGINE
     Dosage: 100 MILLIGRAM, BID
     Route: 048
     Dates: start: 20230303

REACTIONS (1)
  - Encephalopathy [Recovered/Resolved]

NARRATIVE: CASE EVENT DATE: 20240105
